FAERS Safety Report 17937979 (Version 1)
Quarter: 2020Q2

REPORT INFORMATION
  Report Type: Spontaneous
  Country: BR (occurrence: BR)
  Receive Date: 20200624
  Receipt Date: 20200624
  Transmission Date: 20200714
  Serious: Yes (Other)
  Sender: FDA-Public Use
  Company Number: BR-PFIZER INC-2017444923

PATIENT
  Age: 74 Year
  Sex: Female

DRUGS (3)
  1. XALATAN [Suspect]
     Active Substance: LATANOPROST
     Dosage: 2 DROP, DAILY (1 DROP IN EACH EYE A DAY)
     Route: 047
  2. XALATAN [Suspect]
     Active Substance: LATANOPROST
     Indication: GLAUCOMA
     Dosage: 2 DROP, DAILY (1 DROP IN EACH EYE A DAY)
     Route: 047
     Dates: start: 2012
  3. XALATAN [Suspect]
     Active Substance: LATANOPROST
     Dosage: 2 DROP, DAILY (1 DROP IN EACH EYE A DAY)
     Route: 047

REACTIONS (2)
  - Blood pressure increased [Not Recovered/Not Resolved]
  - Cataract [Unknown]

NARRATIVE: CASE EVENT DATE: 20151028
